FAERS Safety Report 5580747-4 (Version None)
Quarter: 2008Q1

REPORT INFORMATION
  Report Type: 
  Country: None (occurrence: None)
  Receive Date: 20080103
  Receipt Date: 20071226
  Transmission Date: 20080703
  Serious: Yes (Hospitalization)
  Sender: FDA-Public Use
  Company Number: US-PFIZER INC-2007108197

PATIENT
  Age: 74 Year
  Sex: Female
  Weight: 64 kg

DRUGS (3)
  1. SPIRONOLACTONE [Suspect]
     Indication: DIURETIC THERAPY
  2. LISINOPRIL [Suspect]
     Indication: CARDIAC FAILURE CONGESTIVE
  3. BLINDED SPIRONOLACTONE [Suspect]
     Indication: ACUTE CORONARY SYNDROME
     Dosage: FREQ:TWO 5.6 ML BOLUS DOSES, THEN 5.0 ML/HR
     Route: 042
     Dates: start: 20060209, end: 20060209

REACTIONS (2)
  - ANGIOEDEMA [None]
  - HYPONATRAEMIA [None]
